FAERS Safety Report 5862747-X (Version None)
Quarter: 2008Q3

REPORT INFORMATION
  Report Type: 
  Country: None (occurrence: None)
  Receive Date: 20080827
  Receipt Date: 20080827
  Transmission Date: 20090109
  Serious: Yes (Life-Threatening, Other)
  Sender: FDA-Public Use
  Company Number: None

PATIENT
  Age: 40 Year
  Sex: Female
  Weight: 64.8644 kg

DRUGS (1)
  1. FLUTICASONE PROPIONATE [Suspect]
     Indication: SEASONAL ALLERGY
     Dosage: 1 SPRAY 1 TIME PER DAY NASAL
     Route: 045
     Dates: start: 20080801, end: 20080828

REACTIONS (7)
  - AGGRESSION [None]
  - ANGIOEDEMA [None]
  - ANXIETY [None]
  - DRUG HYPERSENSITIVITY [None]
  - FATIGUE [None]
  - HEADACHE [None]
  - MYALGIA [None]
